FAERS Safety Report 17401669 (Version 1)
Quarter: 2020Q1

REPORT INFORMATION
  Report Type: Spontaneous
  Country: US (occurrence: US)
  Receive Date: 20200209
  Receipt Date: 20200209
  Transmission Date: 20200409
  Serious: No
  Sender: FDA-Public Use
  Company Number: None

PATIENT
  Age: 35 Year
  Sex: Female
  Weight: 99 kg

DRUGS (2)
  1. IBUPROFEN. [Concomitant]
     Active Substance: IBUPROFEN
  2. TAMIFLU [Suspect]
     Active Substance: OSELTAMIVIR PHOSPHATE
     Indication: INFLUENZA
     Dates: start: 20200126, end: 20200131

REACTIONS (6)
  - Morbid thoughts [None]
  - Depression [None]
  - Anxiety [None]
  - Agitation [None]
  - Nightmare [None]
  - Panic attack [None]

NARRATIVE: CASE EVENT DATE: 20200127
